FAERS Safety Report 5133629-6 (Version None)
Quarter: 2006Q4

REPORT INFORMATION
  Report Type: 
  Country: None (occurrence: None)
  Receive Date: 20061018
  Receipt Date: 20061002
  Transmission Date: 20070319
  Serious: Yes (Hospitalization)
  Sender: FDA-Public Use
  Company Number: PHBS2006GB13349

PATIENT
  Age: 8 Month
  Sex: Male

DRUGS (3)
  1. TIMOLOL 0.5% (NVO) (TIMOLOL MALEATE) EYE DROPS NOS [Suspect]
     Indication: ACCIDENTAL EXPOSURE
     Dosage: 2 DRPS/NOSTRIL, NASAL
     Route: 045
  2. PROPRANOLOL [Suspect]
     Indication: SUPRAVENTRICULAR TACHYCARDIA
     Dosage: 20 MG/DAY
  3. NORMAL SALINE (SODIUM CHLORIDE) NASAL DROPS [Concomitant]

REACTIONS (15)
  - ACCIDENTAL EXPOSURE [None]
  - CARDIOTOXICITY [None]
  - DEPRESSED LEVEL OF CONSCIOUSNESS [None]
  - DRUG INTERACTION [None]
  - HEART RATE DECREASED [None]
  - HYPOTENSION [None]
  - HYPOTONIA [None]
  - LETHARGY [None]
  - METABOLIC ACIDOSIS [None]
  - MIOSIS [None]
  - NEUROTOXICITY [None]
  - PERIPHERAL COLDNESS [None]
  - PULSE ABNORMAL [None]
  - RESPIRATORY RATE DECREASED [None]
  - WRONG DRUG ADMINISTERED [None]
